FAERS Safety Report 25645537 (Version 1)
Quarter: 2025Q3

REPORT INFORMATION
  Report Type: Spontaneous
  Country: US (occurrence: US)
  Receive Date: 20250805
  Receipt Date: 20250805
  Transmission Date: 20251020
  Serious: No
  Sender: MYLAN
  Company Number: US-MYLANLABS-2025M1065399

PATIENT
  Sex: Female
  Weight: 61.23 kg

DRUGS (1)
  1. ESTRADIOL TRANSDERMAL SYSTEM [Suspect]
     Active Substance: ESTRADIOL
     Indication: Hormone replacement therapy
     Dosage: 0.025 MILLIGRAM, QD (PER DAY, TWICE-WEEKLY)

REACTIONS (3)
  - Crying [Unknown]
  - Product administered at inappropriate site [Unknown]
  - Product adhesion issue [Unknown]
